FAERS Safety Report 6596512-5 (Version None)
Quarter: 2010Q1

REPORT INFORMATION
  Report Type: 
  Country: None (occurrence: None)
  Receive Date: 20100222
  Receipt Date: 20100222
  Transmission Date: 20100710
  Serious: No
  Sender: FDA-Public Use
  Company Number: None

PATIENT
  Age: 86 Year
  Sex: Male
  Weight: 91.2 kg

DRUGS (1)
  1. CHOLESTYRAMINE [Suspect]
     Indication: HYPERLIPIDAEMIA
     Dosage: 1 SCOOP BID PO
     Route: 048
     Dates: start: 20081006, end: 20081106

REACTIONS (3)
  - GASTROINTESTINAL HAEMORRHAGE [None]
  - HAEMOGLOBIN DECREASED [None]
  - RECTAL HAEMORRHAGE [None]
